FAERS Safety Report 16950924 (Version 3)
Quarter: 2019Q4

REPORT INFORMATION
  Report Type: Spontaneous
  Country: US (occurrence: US)
  Receive Date: 20191023
  Receipt Date: 20191113
  Transmission Date: 20200122
  Serious: Yes (Death, Hospitalization)
  Sender: FDA-Public Use
  Company Number: US-TEVA-2019-US-1124783

PATIENT
  Age: 73 Year
  Sex: Male

DRUGS (4)
  1. SYNRIBO [Suspect]
     Active Substance: OMACETAXINE MEPESUCCINATE
     Indication: CHRONIC MYELOID LEUKAEMIA
     Dosage: DOSE: 2.7 MG/0.77ML
     Route: 058
     Dates: start: 20190720
  2. PREDNISONE. [Concomitant]
     Active Substance: PREDNISONE
  3. LEVOTHYROXINE. [Concomitant]
     Active Substance: LEVOTHYROXINE
  4. DOXYCYCLIN [Concomitant]
     Active Substance: DOXYCYCLINE

REACTIONS (3)
  - Hospitalisation [Unknown]
  - Death [Fatal]
  - Injection site bruising [Unknown]

NARRATIVE: CASE EVENT DATE: 20191016
